FAERS Safety Report 17884932 (Version 5)
Quarter: 2022Q1

REPORT INFORMATION
  Report Type: Spontaneous
  Country: US (occurrence: US)
  Receive Date: 20200611
  Receipt Date: 20220307
  Transmission Date: 20220423
  Serious: No
  Sender: FDA-Public Use
  Company Number: US-PFIZER INC-2018057624

PATIENT
  Age: 34 Year
  Sex: Female
  Weight: 97.52 kg

DRUGS (5)
  1. SOMAVERT [Suspect]
     Active Substance: PEGVISOMANT
     Indication: Brain neoplasm
     Dosage: 20 MG, DAILY
     Route: 058
     Dates: start: 20171028, end: 20180116
  2. SOMAVERT [Suspect]
     Active Substance: PEGVISOMANT
     Indication: Blood growth hormone increased
     Dosage: 30 MG, DAILY
  3. SOMAVERT [Suspect]
     Active Substance: PEGVISOMANT
     Indication: Pituitary tumour
     Dosage: 30 MG, WEEKLY, (WEEKLY DOSE 30MG)
  4. SOMAVERT [Suspect]
     Active Substance: PEGVISOMANT
     Indication: Blood growth hormone normal
     Dosage: 30 MG, 1X/DAY (30MG ONE INJECTION PER DAY TO STOMACH, ARM OR LEG)
     Dates: start: 2015
  5. SOMAVERT [Suspect]
     Active Substance: PEGVISOMANT
     Dosage: 30 MG

REACTIONS (3)
  - Off label use [Unknown]
  - Product dose omission issue [Unknown]
  - Insulin-like growth factor increased [Unknown]
